FAERS Safety Report 9004988 (Version 1)
Quarter: 2013Q1

REPORT INFORMATION
  Report Type: Spontaneous
  Country: TR (occurrence: TR)
  Receive Date: 20130109
  Receipt Date: 20130109
  Transmission Date: 20140127
  Serious: Yes (Hospitalization, Other)
  Sender: FDA-Public Use
  Company Number: TR-JNJFOC-20121206621

PATIENT
  Age: 29 Year
  Sex: Male
  Weight: 68 kg

DRUGS (2)
  1. REMICADE [Suspect]
     Indication: COLITIS ULCERATIVE
     Route: 042
     Dates: start: 20120614, end: 20121120
  2. PREDNOL [Concomitant]
     Indication: VITH NERVE PARALYSIS
     Route: 048
     Dates: start: 20121202

REACTIONS (2)
  - Optic neuritis [Unknown]
  - VIth nerve paralysis [Recovered/Resolved]
